FAERS Safety Report 4263637-9 (Version None)
Quarter: 2004Q1

REPORT INFORMATION
  Report Type: 
  Country: None (occurrence: None)
  Receive Date: 20040102
  Receipt Date: 20031222
  Transmission Date: 20041129
  Serious: Yes (Other)
  Sender: FDA-Public Use
  Company Number: DE-JNJFOC-20031200005

PATIENT
  Age: 22 Year
  Sex: Male
  Weight: 70 kg

DRUGS (2)
  1. TOPAMAX [Suspect]
     Indication: EPILEPSY
     Dosage: 50 MG, 2 IN 1 DAY, ORAL
     Route: 048
     Dates: start: 20030901
  2. LAMICTAL [Concomitant]

REACTIONS (10)
  - HAEMOGLOBIN DECREASED [None]
  - HAEMOLYSIS [None]
  - HEPATOSPLENOMEGALY [None]
  - HYPERHIDROSIS [None]
  - JAUNDICE [None]
  - MUCOUS MEMBRANE DISORDER [None]
  - OCULAR ICTERUS [None]
  - PANCYTOPENIA [None]
  - PYREXIA [None]
  - WEIGHT DECREASED [None]
